FAERS Safety Report 8158388-4 (Version None)
Quarter: 2012Q1

REPORT INFORMATION
  Report Type: 
  Country: None (occurrence: None)
  Receive Date: 20120217
  Receipt Date: 20120125
  Transmission Date: 20120608
  Serious: Yes (Hospitalization)
  Sender: FDA-Public Use
  Company Number: 001102988A

PATIENT
  Sex: Female

DRUGS (2)
  1. PROACTIV CLEANER 2.5% BENZOYL PEROXIDE GUTHY;RENKER [Suspect]
     Indication: ACNE
     Dosage: DAILY, TOPICAL
     Route: 061
  2. PROACTIV LOTION 2.5% BENZOYL PEROXIED, GUTH;RENKER [Suspect]
     Indication: ACNE
     Dosage: DAILY, TOPICAL
     Route: 061

REACTIONS (1)
  - RASH [None]
